FAERS Safety Report 20297998 (Version 1)
Quarter: 2022Q1

REPORT INFORMATION
  Report Type: Spontaneous
  Country: US (occurrence: US)
  Receive Date: 20220105
  Receipt Date: 20220105
  Transmission Date: 20220423
  Serious: Yes (Other)
  Sender: FDA-Public Use
  Company Number: US-GLAXOSMITHKLINE-US2022GSK000100

PATIENT

DRUGS (6)
  1. ZANTAC [Suspect]
     Active Substance: RANITIDINE HYDROCHLORIDE
     Indication: Angina pectoris
     Dosage: 150 MG, QD
     Route: 065
     Dates: start: 199101, end: 201902
  2. ZANTAC [Suspect]
     Active Substance: RANITIDINE HYDROCHLORIDE
     Dosage: 150 MG, BID, 2X^S/DAY
     Route: 065
     Dates: start: 199101, end: 201902
  3. ZANTAC [Suspect]
     Active Substance: RANITIDINE HYDROCHLORIDE
     Indication: Angina pectoris
     Dosage: 150 MG, QD
     Route: 065
     Dates: start: 199101, end: 201902
  4. ZANTAC [Suspect]
     Active Substance: RANITIDINE HYDROCHLORIDE
     Dosage: 150 MG, BID, 2X^S/DAY
     Route: 065
     Dates: start: 199101, end: 201902
  5. RANITIDINE [Suspect]
     Active Substance: RANITIDINE
     Indication: Angina pectoris
     Dosage: 150 MG, BID, 2X^S/DAY
     Route: 065
     Dates: start: 199101, end: 201912
  6. RANITIDINE [Suspect]
     Active Substance: RANITIDINE
     Indication: Angina pectoris
     Dosage: 150 MG, BID, 2X^S/DAY
     Route: 065
     Dates: start: 199101, end: 201912

REACTIONS (1)
  - Oesophageal carcinoma [Unknown]
